FAERS Safety Report 4518151-X (Version None)
Quarter: 2004Q4

REPORT INFORMATION
  Report Type: 
  Country: None (occurrence: None)
  Receive Date: 20041130
  Receipt Date: 20041118
  Transmission Date: 20050328
  Serious: Yes (Hospitalization)
  Sender: FDA-Public Use
  Company Number: S04-USA-07466-02

PATIENT
  Sex: Female
  Weight: 2.903 kg

DRUGS (4)
  1. CELEXA [Suspect]
     Indication: DRUG EXPOSURE DURING PREGNANCY
     Dosage: 20 MG QD TRANSPLACENTAL
     Route: 064
     Dates: start: 20020101, end: 20020101
  2. INSULIN [Concomitant]
  3. PRENATAL VITAMINS [Concomitant]
  4. LABOR INDUCTION MEDICATION (NOS) [Concomitant]

REACTIONS (3)
  - BLOOD GLUCOSE INCREASED [None]
  - DRUG EXPOSURE DURING PREGNANCY [None]
  - PULMONARY OEDEMA NEONATAL [None]
